FAERS Safety Report 23913961 (Version 4)
Quarter: 2025Q3

REPORT INFORMATION
  Report Type: Report from Study
  Country: JP (occurrence: JP)
  Receive Date: 20240529
  Receipt Date: 20250805
  Transmission Date: 20251020
  Serious: Yes (Disabling)
  Sender: ASTELLAS
  Company Number: JP-ASTELLAS-2022JP003813

PATIENT
  Age: 73 Year
  Sex: Female
  Weight: 58 kg

DRUGS (14)
  1. PADCEV [Suspect]
     Active Substance: ENFORTUMAB VEDOTIN-EJFV
     Indication: Transitional cell carcinoma
     Route: 042
     Dates: start: 20220215, end: 20220222
  2. PADCEV [Suspect]
     Active Substance: ENFORTUMAB VEDOTIN-EJFV
     Route: 042
     Dates: start: 20220316, end: 20220720
  3. PADCEV [Suspect]
     Active Substance: ENFORTUMAB VEDOTIN-EJFV
     Route: 042
     Dates: start: 20220831, end: 20221012
  4. GEMCITABINE [Suspect]
     Active Substance: GEMCITABINE
     Indication: Product used for unknown indication
     Route: 065
  5. CISPLATIN [Suspect]
     Active Substance: CISPLATIN
     Indication: Product used for unknown indication
     Route: 065
  6. PACLITAXEL [Suspect]
     Active Substance: PACLITAXEL
     Indication: Product used for unknown indication
     Route: 065
  7. PEMBROLIZUMAB [Concomitant]
     Active Substance: PEMBROLIZUMAB
     Indication: Transitional cell carcinoma
     Route: 065
     Dates: start: 20211214, end: 20220214
  8. Talion OD tablet 10mg [Concomitant]
     Indication: Skin disorder
     Dosage: 2 TABLETS FOR 2 TIMES A DAY AFTER BREAKFAST AND DINNER
     Route: 048
     Dates: start: 20220222, end: 20220304
  9. DIFLUPREDNATE [Concomitant]
     Active Substance: DIFLUPREDNATE
     Indication: Skin disorder
     Dosage: APPROPRIATE AMOUNT
     Route: 065
     Dates: start: 20220222, end: 20220301
  10. Prednisolone tablet 5mg [Concomitant]
     Indication: Skin disorder
     Dosage: 3 TABLETS ONCE AFTER BREAKFAST
     Route: 048
     Dates: start: 20220302, end: 20220304
  11. Prednisolone tablet 5mg [Concomitant]
     Dosage: 10 MG IN THE MORNING, 5 MG IN THE AFTERNOON
     Route: 048
     Dates: start: 20220305, end: 20220309
  12. Prednisolone tablet 5mg [Concomitant]
     Route: 048
     Dates: start: 20220310, end: 20220312
  13. Prednisolone tablet 5mg [Concomitant]
     Route: 048
     Dates: start: 20220313, end: 20220316
  14. Fulmeta ointment [Concomitant]
     Indication: Skin disorder
     Dosage: APPROPRIATE AMOUNT
     Route: 065
     Dates: start: 20220302, end: 20220329

REACTIONS (2)
  - Skin disorder [Recovered/Resolved with Sequelae]
  - Hepatic function abnormal [Recovered/Resolved]

NARRATIVE: CASE EVENT DATE: 20220215
